FAERS Safety Report 8414034-3 (Version None)
Quarter: 2012Q2

REPORT INFORMATION
  Report Type: 
  Country: None (occurrence: None)
  Receive Date: 20120605
  Receipt Date: 20120529
  Transmission Date: 20120825
  Serious: Yes (Hospitalization)
  Sender: FDA-Public Use
  Company Number: US-CELGENEUS-163-21880-12050195

PATIENT
  Sex: Female
  Weight: 93.978 kg

DRUGS (7)
  1. PLAVIX [Concomitant]
     Dosage: 75 MILLIGRAM
     Route: 065
  2. REVLIMID [Suspect]
     Indication: MULTIPLE MYELOMA
     Dosage: 25 MILLIGRAM
     Route: 048
     Dates: start: 20101117
  3. PEPCID [Concomitant]
     Dosage: 20 MILLIGRAM
     Route: 065
  4. ASPIRIN [Concomitant]
     Dosage: 325 MILLIGRAM
     Route: 065
  5. LOMOTIL [Concomitant]
     Route: 065
  6. REVLIMID [Suspect]
     Dosage: 10 MILLIGRAM
     Route: 048
     Dates: start: 20110701
  7. CLIMARA [Concomitant]
     Dosage: 1 PATCH
     Route: 062

REACTIONS (3)
  - DIARRHOEA [None]
  - CHOLECYSTITIS CHRONIC [None]
  - CHOLELITHIASIS [None]
